FAERS Safety Report 15949516 (Version 2)
Quarter: 2019Q1

REPORT INFORMATION
  Report Type: Spontaneous
  Country: US (occurrence: US)
  Receive Date: 20190211
  Receipt Date: 20190225
  Transmission Date: 20190417
  Serious: Yes (Other)
  Sender: FDA-Public Use
  Company Number: US-ASTRAZENECA-2019SE09964

PATIENT
  Age: 26202 Day
  Sex: Male

DRUGS (15)
  1. CALCIFEROL [Concomitant]
  2. METOPROLOL. [Concomitant]
     Active Substance: METOPROLOL
  3. FERROUS SULFATE. [Concomitant]
     Active Substance: FERROUS SULFATE
  4. LISINOPRIL. [Concomitant]
     Active Substance: LISINOPRIL
  5. NEXIUM [Suspect]
     Active Substance: ESOMEPRAZOLE MAGNESIUM
     Dosage: 40.0MG UNKNOWN
     Route: 048
     Dates: start: 20130120
  6. TRAMADOL. [Concomitant]
     Active Substance: TRAMADOL
  7. SIMVASTATIN. [Concomitant]
     Active Substance: SIMVASTATIN
  8. PROAIR HFA [Concomitant]
     Active Substance: ALBUTEROL SULFATE
  9. METOPROLOL. [Concomitant]
     Active Substance: METOPROLOL
  10. INDOMETHACIN. [Concomitant]
     Active Substance: INDOMETHACIN
  11. PREDNISOLON [Concomitant]
     Active Substance: PREDNISOLONE
  12. NEXIUM [Suspect]
     Active Substance: ESOMEPRAZOLE MAGNESIUM
     Route: 048
  13. ULORIC [Concomitant]
     Active Substance: FEBUXOSTAT
  14. CIPROFLOXACIN. [Concomitant]
     Active Substance: CIPROFLOXACIN
  15. DICLOFENAC [Concomitant]
     Active Substance: DICLOFENAC

REACTIONS (6)
  - Rebound acid hypersecretion [Unknown]
  - Acute kidney injury [Unknown]
  - Chronic kidney disease [Unknown]
  - Renal failure [Unknown]
  - Renal injury [Unknown]
  - Nephrogenic anaemia [Unknown]

NARRATIVE: CASE EVENT DATE: 20160619
